FAERS Safety Report 15707780 (Version 1)
Quarter: 2018Q4

REPORT INFORMATION
  Report Type: Spontaneous
  Country: US (occurrence: US)
  Receive Date: 20181127
  Receipt Date: 20181127
  Transmission Date: 20190205
  Serious: No
  Sender: FDA-Public Use
  Company Number: None

PATIENT
  Age: 78 Year
  Sex: Female
  Weight: 76.66 kg

DRUGS (5)
  1. SYNTHROID 88 [Concomitant]
  2. A REDS 2 [Concomitant]
  3. RISEDRONATE SODIUM 150MG [Suspect]
     Active Substance: RISEDRONATE SODIUM
     Indication: OSTEOPOROSIS PROPHYLAXIS
     Dosage: ?          QUANTITY:1PILL;OTHER ROUTE:BY MOUTH FIRST THING IN AM?
     Dates: start: 20180111, end: 20180111
  4. BRIMONIDINE 15 ML [Concomitant]
  5. VITAMIN D [Concomitant]
     Active Substance: CHOLECALCIFEROL

REACTIONS (6)
  - Gait disturbance [None]
  - Joint stiffness [None]
  - Grip strength decreased [None]
  - Back pain [None]
  - Arthralgia [None]
  - Pain in extremity [None]

NARRATIVE: CASE EVENT DATE: 20180211
